FAERS Safety Report 4395186-1 (Version None)
Quarter: 2004Q3

REPORT INFORMATION
  Report Type: 
  Country: None (occurrence: None)
  Receive Date: 20040706
  Receipt Date: 20040623
  Transmission Date: 20050211
  Serious: Yes (Hospitalization)
  Sender: FDA-Public Use
  Company Number: 200409070

PATIENT
  Age: 72 Year
  Sex: Male

DRUGS (12)
  1. STREPTASE [Suspect]
     Indication: MYOCARDIAL INFARCTION
     Dosage: 1.5 MIU DAILY IV
     Route: 042
     Dates: start: 20040428, end: 20040428
  2. ASPIRIN [Suspect]
     Indication: MYOCARDIAL INFARCTION
     Dosage: 300 MG DAILY PO
     Route: 048
     Dates: start: 20040428, end: 20040428
  3. ENOXAPARIN OR PLACEBO VS. HEPARIN OR PLACEBO [Suspect]
     Indication: MYOCARDIAL INFARCTION
     Dosage: IV
     Route: 042
     Dates: start: 20040428, end: 20040428
  4. METOPROLOL [Suspect]
     Dosage: SEE IMAGE
     Route: 042
     Dates: start: 20040428, end: 20040428
  5. METOPROLOL [Suspect]
     Dosage: SEE IMAGE
     Route: 042
     Dates: start: 20040428, end: 20040428
  6. GTN [Concomitant]
  7. MAXOLON [Concomitant]
  8. MORPHINE SULFATE [Concomitant]
  9. HEPARIN [Concomitant]
  10. SECOND DEGREE HEART BLOCK [Concomitant]
  11. COMPLETE HEART BLOCK [Concomitant]
  12. SINUS BRADYCARDIA (FIRST DEGREE) [Concomitant]

REACTIONS (10)
  - ANXIETY [None]
  - ATRIOVENTRICULAR BLOCK COMPLETE [None]
  - ATRIOVENTRICULAR BLOCK FIRST DEGREE [None]
  - ATRIOVENTRICULAR BLOCK SECOND DEGREE [None]
  - BLOOD PRESSURE INCREASED [None]
  - CHEST PAIN [None]
  - DILATATION VENTRICULAR [None]
  - ELECTROCARDIOGRAM ST SEGMENT ELEVATION [None]
  - HYPERHIDROSIS [None]
  - SINUS BRADYCARDIA [None]
